FAERS Safety Report 4344859-5 (Version None)
Quarter: 2004Q2

REPORT INFORMATION
  Report Type: 
  Country: None (occurrence: None)
  Receive Date: 20040423
  Receipt Date: 20030417
  Transmission Date: 20050107
  Serious: No
  Sender: FDA-Public Use
  Company Number: US-GLAXOSMITHKLINE-A0405391A

PATIENT
  Age: 27 Year
  Sex: Female

DRUGS (7)
  1. ZOFRAN [Suspect]
     Indication: VOMITING
     Dosage: 8MG THREE TIMES PER DAY
     Route: 042
     Dates: start: 20030414, end: 20030414
  2. MORPHINE [Concomitant]
     Indication: PAIN
     Dosage: 2MG UNKNOWN
     Route: 042
     Dates: start: 20030414, end: 20030414
  3. TIGAN [Concomitant]
     Indication: VOMITING
     Dosage: 200MG UNKNOWN
     Route: 030
     Dates: start: 20030414, end: 20030414
  4. MYLANTA [Concomitant]
     Indication: VOMITING
     Dosage: 30CC UNKNOWN
     Route: 048
     Dates: start: 20030414, end: 20030414
  5. DONNATAL [Concomitant]
     Indication: VOMITING
     Dosage: 30CC UNKNOWN
     Route: 065
     Dates: start: 20030414, end: 20030414
  6. LIDOCAINE HCL VISCOUS [Concomitant]
     Indication: VOMITING
     Dosage: 30CC UNKNOWN
     Route: 065
     Dates: start: 20030414, end: 20030414
  7. PEPCID [Concomitant]
     Indication: VOMITING
     Dosage: 20MG UNKNOWN
     Route: 042
     Dates: start: 20030414, end: 20030414

REACTIONS (1)
  - DRUG INEFFECTIVE [None]
